FAERS Safety Report 9468837 (Version 1)
Quarter: 2013Q3

REPORT INFORMATION
  Report Type: Spontaneous
  Country: TW (occurrence: TW)
  Receive Date: 20130821
  Receipt Date: 20130821
  Transmission Date: 20140515
  Serious: Yes (Hospitalization, Other)
  Sender: FDA-Public Use
  Company Number: TW-MERCK-1308TWN007419

PATIENT
  Age: 66 Year
  Sex: Female

DRUGS (8)
  1. PEG-INTRON [Suspect]
     Indication: CHRONIC HEPATITIS C
     Dosage: 100 MICROGRAM, QW
     Route: 058
     Dates: start: 20130430, end: 20130811
  2. BOCEPREVIR [Suspect]
     Indication: CHRONIC HEPATITIS C
     Dosage: 200 MG, THREE TIMES DAILY
     Route: 048
     Dates: start: 20130528, end: 20130811
  3. RIBAVIRIN [Suspect]
     Indication: CHRONIC HEPATITIS C
     Dosage: 800 MG DAILY
     Route: 048
     Dates: start: 20130430, end: 20130811
  4. ACETAMINOPHEN [Concomitant]
     Indication: PROPHYLAXIS
     Dosage: UNK, PRN
     Route: 048
     Dates: start: 20130430
  5. CLONAZEPAM [Concomitant]
     Indication: INSOMNIA
     Dosage: 0.5 MG, DAILY
     Route: 048
     Dates: start: 20130715
  6. DIPHENIDOL HYDROCHLORIDE [Concomitant]
     Indication: DIZZINESS
     Dosage: 25 MG, QD
     Route: 048
     Dates: start: 20130715
  7. IMIPRAMINE HYDROCHLORIDE [Concomitant]
     Indication: DEPRESSION
     Dosage: 50 MG, DAILY
     Route: 048
     Dates: start: 20130715
  8. TRIHEXYPHENIDYL HYDROCHLORIDE [Concomitant]
     Indication: SOMATISATION DISORDER
     Dosage: 2 MG, DAILY
     Route: 048
     Dates: start: 20130729

REACTIONS (3)
  - Acute respiratory failure [Recovering/Resolving]
  - Pneumonia [Recovering/Resolving]
  - Endotracheal intubation [Unknown]
